FAERS Safety Report 7734958-X (Version None)
Quarter: 2011Q3

REPORT INFORMATION
  Report Type: 
  Country: None (occurrence: None)
  Receive Date: 20110907
  Receipt Date: 20110830
  Transmission Date: 20111222
  Serious: Yes (Death)
  Sender: FDA-Public Use
  Company Number: AR-GENZYME-THYM-1002736

PATIENT
  Age: 9 Year
  Sex: Male
  Weight: 45 kg

DRUGS (3)
  1. CORTICOSTEROIDS [Concomitant]
     Indication: APLASTIC ANAEMIA
     Dosage: 20 MG/KG, UNK
     Route: 065
  2. THYMOGLOBULIN [Suspect]
     Indication: APLASTIC ANAEMIA
     Dosage: 3.5 MG/KG, UNK
     Route: 042
     Dates: start: 20100922
  3. CYCLOSPORINE [Concomitant]
     Indication: APLASTIC ANAEMIA
     Dosage: 5 MG/KG, UNK
     Route: 065

REACTIONS (2)
  - SEPSIS [None]
  - PANCYTOPENIA [None]
